FAERS Safety Report 8957082 (Version 2)
Quarter: 2013Q2

REPORT INFORMATION
  Report Type: Report from Study
  Country: JP (occurrence: JP)
  Receive Date: 20121210
  Receipt Date: 20130607
  Transmission Date: 20140414
  Serious: Yes (Hospitalization)
  Sender: FDA-Public Use
  Company Number: JP-009507513-1212JPN002229

PATIENT
  Age: 50 Year
  Sex: Male
  Weight: 63 kg

DRUGS (6)
  1. PEGINTRON [Suspect]
     Indication: CHRONIC HEPATITIS C
     Dosage: 1.5 MICROGRAM PER KILOGRAM, QW
     Route: 058
     Dates: start: 20120906
  2. REBETOL [Suspect]
     Indication: CHRONIC HEPATITIS C
     Dosage: 200 MG, QD
     Route: 048
     Dates: start: 20120904
  3. TELAVIC [Suspect]
     Indication: CHRONIC HEPATITIS C
     Dosage: 1500 MG, QD
     Route: 048
     Dates: start: 20120904, end: 20120927
  4. TELAVIC [Suspect]
     Dosage: 1000 MG, QD
     Route: 048
     Dates: start: 20121006, end: 20121108
  5. URSO [Concomitant]
     Indication: CHRONIC HEPATITIS C
     Dosage: 300 MG, QD, POR
     Route: 048
     Dates: start: 20121003
  6. [THERAPY UNSPECIFIED] [Concomitant]
     Indication: CHRONIC HEPATITIS C
     Dosage: 40 ML, QD
     Route: 042
     Dates: start: 20121002, end: 20121018

REACTIONS (1)
  - Hepatic function abnormal [Recovered/Resolved]
